FAERS Safety Report 10190538 (Version 1)
Quarter: 2014Q2

REPORT INFORMATION
  Report Type: Report from Study
  Country: AR (occurrence: AR)
  Receive Date: 20140523
  Receipt Date: 20140523
  Transmission Date: 20141212
  Serious: Yes (Hospitalization)
  Sender: FDA-Public Use
  Company Number: AR-ABBVIE-14P-007-1238508-00

PATIENT
  Age: 55 Year
  Sex: Female

DRUGS (2)
  1. HUMIRA [Suspect]
     Indication: RHEUMATOID ARTHRITIS
     Route: 058
     Dates: start: 20110101
  2. MEDICATION (DRUG UNKNOWN) [Suspect]
     Indication: RHEUMATOID ARTHRITIS
     Dosage: 3 OR 4 TIMES PER DAY

REACTIONS (2)
  - Musculoskeletal stiffness [Recovered/Resolved]
  - Gait disturbance [Unknown]
